FAERS Safety Report 6279980-8 (Version None)
Quarter: 2009Q3

REPORT INFORMATION
  Report Type: 
  Country: None (occurrence: None)
  Receive Date: 20090723
  Receipt Date: 20090507
  Transmission Date: 20100115
  Serious: No
  Sender: FDA-Public Use
  Company Number: US-AMGEN-KDL346335

PATIENT
  Sex: Female
  Weight: 59 kg

DRUGS (7)
  1. PROCRIT [Suspect]
     Indication: ANAEMIA
     Dates: start: 20090320
  2. OXYGEN [Concomitant]
  3. DIOVAN [Concomitant]
     Route: 048
  4. ALLOPURINOL [Concomitant]
     Route: 048
  5. SIMVASTATIN [Concomitant]
     Route: 048
  6. PLAVIX [Concomitant]
     Route: 048
  7. SYNTHROID [Concomitant]
     Route: 048

REACTIONS (3)
  - DYSPNOEA [None]
  - FATIGUE [None]
  - HYPERHIDROSIS [None]
